FAERS Safety Report 7920421 (Version 2)
Quarter: 2013Q1

REPORT INFORMATION
  Report Type: Report from Study
  Country: PH (occurrence: PH)
  Receive Date: 20110429
  Receipt Date: 20130214
  Transmission Date: 20140127
  Serious: Yes (Hospitalization, Other)
  Sender: FDA-Public Use
  Company Number: PH-JNJFOC-20080202726

PATIENT
  Age: 66 Year
  Sex: Female
  Weight: 69 kg

DRUGS (26)
  1. GOLIMUMAB [Suspect]
     Indication: RHEUMATOID ARTHRITIS
     Dosage: WEEK 12
     Route: 058
     Dates: start: 20070709
  2. GOLIMUMAB [Suspect]
     Indication: RHEUMATOID ARTHRITIS
     Dosage: WEEK 8
     Route: 058
     Dates: start: 20070605
  3. GOLIMUMAB [Suspect]
     Indication: RHEUMATOID ARTHRITIS
     Dosage: WEEK 16
     Route: 058
     Dates: start: 20070731
  4. GOLIMUMAB [Suspect]
     Indication: RHEUMATOID ARTHRITIS
     Dosage: WEEK 20
     Route: 058
     Dates: start: 20070830
  5. GOLIMUMAB [Suspect]
     Indication: RHEUMATOID ARTHRITIS
     Dosage: WEEK 24
     Route: 058
     Dates: start: 20070917
  6. GOLIMUMAB [Suspect]
     Indication: RHEUMATOID ARTHRITIS
     Dosage: WEEK 28
     Route: 058
     Dates: start: 20071026
  7. GOLIMUMAB [Suspect]
     Indication: RHEUMATOID ARTHRITIS
     Dosage: WEEK 40
     Route: 058
     Dates: start: 20080117
  8. GOLIMUMAB [Suspect]
     Indication: RHEUMATOID ARTHRITIS
     Dosage: WEEK 36
     Route: 058
     Dates: start: 20071224
  9. GOLIMUMAB [Suspect]
     Indication: RHEUMATOID ARTHRITIS
     Dosage: WEEK 0
     Route: 058
     Dates: start: 20070410
  10. GOLIMUMAB [Suspect]
     Indication: RHEUMATOID ARTHRITIS
     Dosage: WEEK 32
     Route: 058
     Dates: start: 20071122
  11. GOLIMUMAB [Suspect]
     Indication: RHEUMATOID ARTHRITIS
     Dosage: WEEK 4
     Route: 058
     Dates: start: 20070508
  12. METHOTREXATE [Suspect]
     Indication: RHEUMATOID ARTHRITIS
     Route: 048
     Dates: start: 20071026, end: 20080111
  13. METHOTREXATE [Suspect]
     Indication: RHEUMATOID ARTHRITIS
     Route: 048
     Dates: start: 20070606, end: 20071019
  14. METHOTREXATE [Suspect]
     Indication: RHEUMATOID ARTHRITIS
     Route: 048
     Dates: start: 20070530, end: 20070530
  15. METHOTREXATE [Suspect]
     Indication: RHEUMATOID ARTHRITIS
     Route: 048
     Dates: start: 20070523, end: 20070523
  16. METHOTREXATE [Suspect]
     Indication: RHEUMATOID ARTHRITIS
     Route: 048
     Dates: start: 20070516, end: 20070516
  17. METHOTREXATE [Suspect]
     Indication: RHEUMATOID ARTHRITIS
     Route: 048
     Dates: start: 20070401, end: 20070509
  18. METHOTREXATE [Suspect]
     Indication: RHEUMATOID ARTHRITIS
     Route: 048
     Dates: start: 20080201
  19. SIMVASTATIN [Concomitant]
     Dates: start: 200511
  20. VASCOR [Concomitant]
     Route: 048
     Dates: start: 2006
  21. PREDNISONE [Concomitant]
     Route: 048
     Dates: start: 20070315
  22. FOLIC ACID [Concomitant]
     Route: 048
     Dates: start: 20070607
  23. TRAMADOL [Concomitant]
     Route: 048
     Dates: start: 20070710
  24. DIFFLAM [Concomitant]
     Route: 048
     Dates: start: 20070917
  25. BACTIDOL GARGLE [Concomitant]
     Route: 048
     Dates: start: 20070917
  26. CALVIT [Concomitant]
     Route: 048
     Dates: start: 20071027

REACTIONS (2)
  - Pleural effusion [Not Recovered/Not Resolved]
  - Pulmonary tuberculosis [Recovering/Resolving]
